FAERS Safety Report 7904209-1 (Version None)
Quarter: 2011Q4

REPORT INFORMATION
  Report Type: 
  Country: None (occurrence: None)
  Receive Date: 20111109
  Receipt Date: 20111027
  Transmission Date: 20120403
  Serious: Yes (Other)
  Sender: FDA-Public Use
  Company Number: RU-ROCHE-1007653

PATIENT

DRUGS (2)
  1. AVASTIN [Suspect]
     Indication: GLAUCOMA
     Route: 065
  2. RANIBIZUMAB [Suspect]
     Indication: GLAUCOMA
     Route: 058

REACTIONS (3)
  - HYPHAEMA [None]
  - CHOROIDAL DETACHMENT [None]
  - OFF LABEL USE [None]
